FAERS Safety Report 8899790 (Version 1)
Quarter: 2012Q4

REPORT INFORMATION
  Report Type: 
  Country: US (occurrence: US)
  Receive Date: 20121108
  Receipt Date: 20121108
  Transmission Date: 20130627
  Serious: No
  Sender: FDA-Public Use
  Company Number: US-AMGEN-USASP2012036313

PATIENT
  Age: 60 Year
  Sex: Female
  Weight: 84.81 kg

DRUGS (12)
  1. ENBREL [Suspect]
     Indication: RHEUMATOID ARTHRITIS
     Dosage: 50 mg, qwk
     Route: 058
     Dates: start: 20120322
  2. FLEXERIL                           /00428402/ [Concomitant]
     Dosage: 10 mg, UNK
  3. LIPITOR [Concomitant]
     Dosage: 10 mg, UNK
  4. VITAMIN D /00107901/ [Concomitant]
     Dosage: 50000 IU, UNK
  5. CALCIUM W/VITAMIN D                /00188401/ [Concomitant]
  6. NADOLOL [Concomitant]
     Dosage: 40 mg, UNK
  7. XANAX [Concomitant]
     Dosage: 1 mg, UNK
  8. IMITREX                            /01044801/ [Concomitant]
     Dosage: 25 mg, UNK
  9. CIPRO                              /00697201/ [Concomitant]
     Dosage: 250 mg, UNK
  10. EXALGO [Concomitant]
     Dosage: 8 mg, UNK
  11. TOPAMAX [Concomitant]
     Dosage: 100 mg, UNK
  12. HYDROCODONE W/APAP                 /00607101/ [Concomitant]

REACTIONS (2)
  - Drug ineffective [Unknown]
  - Injection site pain [Unknown]
